FAERS Safety Report 8654844 (Version 10)
Quarter: 2016Q3

REPORT INFORMATION
  Report Type: Spontaneous
  Country: US (occurrence: US)
  Receive Date: 20120709
  Receipt Date: 20160816
  Transmission Date: 20161109
  Serious: Yes (Hospitalization, Other)
  Sender: FDA-Public Use
  Company Number: US-GLAXOSMITHKLINE-A0983628A

PATIENT
  Age: 43 Year
  Sex: Female

DRUGS (13)
  1. FLOLAN [Suspect]
     Active Substance: EPOPROSTENOL SODIUM
     Dosage: UNK
     Dates: start: 20090130
  2. FLOLAN [Suspect]
     Active Substance: EPOPROSTENOL SODIUM
     Dosage: UNK
     Dates: start: 20090130
  3. FLOLAN [Suspect]
     Active Substance: EPOPROSTENOL SODIUM
     Dosage: 35.5 NG/KG/MIN
  4. REVATIO [Concomitant]
     Active Substance: SILDENAFIL CITRATE
  5. FLOLAN [Suspect]
     Active Substance: EPOPROSTENOL SODIUM
     Indication: COR PULMONALE CHRONIC
     Dosage: 35 NG/KG/MIN CONTINOUS45,000 NG/ML CONCENTRATIONVIAL STRENGTH 1.5 MG
     Route: 065
     Dates: start: 20090130
  6. FLOLAN [Suspect]
     Active Substance: EPOPROSTENOL SODIUM
     Indication: PULMONARY HYPERTENSION
     Dosage: UNK
     Dates: start: 20090130
  7. FLOLAN [Suspect]
     Active Substance: EPOPROSTENOL SODIUM
     Dosage: UNK
     Dates: start: 20090130
  8. FLOLAN [Suspect]
     Active Substance: EPOPROSTENOL SODIUM
     Indication: PULMONARY HYPERTENSION
     Dosage: UNK
  9. FLOLAN [Suspect]
     Active Substance: EPOPROSTENOL SODIUM
     Dosage: UNK
     Dates: start: 20090130
  10. FLOLAN [Suspect]
     Active Substance: EPOPROSTENOL SODIUM
     Dosage: 35.5 NG/KG/MIN 45,000 NG/ML CONCENTRATION VIAL STRENGTH 1.5 MG, CO
     Dates: start: 20090302
  11. FLOLAN [Suspect]
     Active Substance: EPOPROSTENOL SODIUM
     Dosage: UNK UNK, CO
     Route: 065
     Dates: start: 20090130
  12. FLOLAN [Suspect]
     Active Substance: EPOPROSTENOL SODIUM
     Dosage: UNK
     Dates: start: 20090130
  13. LASIX [Concomitant]
     Active Substance: FUROSEMIDE

REACTIONS (17)
  - Dyspnoea [Unknown]
  - Asthma [Unknown]
  - Renal failure [Recovering/Resolving]
  - Device related infection [Unknown]
  - Fatigue [Unknown]
  - Chest discomfort [Not Recovered/Not Resolved]
  - Lower respiratory tract infection [Unknown]
  - Chest pain [Unknown]
  - Urticaria [Unknown]
  - Lower respiratory tract infection viral [Unknown]
  - Hyperhidrosis [Recovered/Resolved]
  - Anal incontinence [Recovered/Resolved]
  - Adverse event [Unknown]
  - Diarrhoea [Recovered/Resolved]
  - Headache [Unknown]
  - Flushing [Unknown]
  - Productive cough [Unknown]

NARRATIVE: CASE EVENT DATE: 20120905
